FAERS Safety Report 8501981-7 (Version None)
Quarter: 2012Q3

REPORT INFORMATION
  Report Type: 
  Country: None (occurrence: None)
  Receive Date: 20120711
  Receipt Date: 20120619
  Transmission Date: 20120928
  Serious: No
  Sender: FDA-Public Use
  Company Number: CA-JNJFOC-20120610406

PATIENT
  Sex: Female
  Weight: 78 kg

DRUGS (2)
  1. REMICADE [Suspect]
     Indication: COLITIS
     Dosage: 6 TO 8 WEEKS
     Route: 042
     Dates: start: 20110501
  2. REMICADE [Suspect]
     Route: 042

REACTIONS (1)
  - NASOPHARYNGITIS [None]
